FAERS Safety Report 8961253 (Version 1)
Quarter: 2012Q4

REPORT INFORMATION
  Report Type: 
  Country: TR (occurrence: TR)
  Receive Date: 20121212
  Receipt Date: 20121212
  Transmission Date: 20130627
  Serious: Yes (Death)
  Sender: FDA-Public Use
  Company Number: TR-ACTELION-A-CH2012-75906

PATIENT
  Age: 18 Year
  Sex: Female
  Weight: 35 kg

DRUGS (9)
  1. TRACLEER [Suspect]
     Indication: PULMONARY ARTERIAL HYPERTENSION
     Dosage: UNK
     Route: 048
  2. SILDENAFIL [Concomitant]
  3. PROPRANOLOL [Concomitant]
  4. ENALAPRIL [Concomitant]
  5. FUROSEMIDE [Concomitant]
  6. DIGOXIN [Concomitant]
  7. DOBUTAMIN [Concomitant]
  8. SPIRONOLACTON [Concomitant]
  9. COUMADIN [Concomitant]

REACTIONS (4)
  - Cardiac failure [Fatal]
  - Multi-organ failure [Fatal]
  - Low cardiac output syndrome [Fatal]
  - Renal failure [Fatal]
